FAERS Safety Report 9415623 (Version 3)
Quarter: 2013Q4

REPORT INFORMATION
  Report Type: Spontaneous
  Country: US (occurrence: US)
  Receive Date: 20130723
  Receipt Date: 20131023
  Transmission Date: 20140711
  Serious: Yes (Death, Hospitalization, Disabling, Other)
  Sender: FDA-Public Use
  Company Number: US-009507513-1307USA012631

PATIENT
  Sex: Male
  Weight: 140.14 kg

DRUGS (3)
  1. JANUVIA [Suspect]
     Indication: TYPE 2 DIABETES MELLITUS
     Dosage: UNK, BID
     Route: 048
     Dates: end: 20111120
  2. JANUVIA [Suspect]
     Dosage: 100 MG, QD
     Route: 048
     Dates: start: 20110531
  3. BYETTA [Suspect]

REACTIONS (20)
  - Pancreatic carcinoma [Fatal]
  - Stent placement [Unknown]
  - Pancreatic stent placement [Unknown]
  - Pancreaticoduodenectomy [Unknown]
  - Cholecystectomy [Unknown]
  - Pancreatitis acute [Not Recovered/Not Resolved]
  - Radiotherapy [Unknown]
  - Hepatomegaly [Unknown]
  - Chronic obstructive pulmonary disease [Unknown]
  - Granuloma [Unknown]
  - Emphysema [Unknown]
  - Electrocardiogram QT prolonged [Unknown]
  - Biliary dilatation [Unknown]
  - Diverticulum intestinal [Unknown]
  - Colitis [Unknown]
  - Electrocardiogram T wave abnormal [Unknown]
  - Hernia repair [Unknown]
  - Blood potassium decreased [Unknown]
  - Drug hypersensitivity [Unknown]
  - Drug hypersensitivity [Unknown]
